FAERS Safety Report 6102314-6 (Version None)
Quarter: 2009Q1

REPORT INFORMATION
  Report Type: 
  Country: None (occurrence: None)
  Receive Date: 20090227
  Receipt Date: 20080116
  Transmission Date: 20090719
  Serious: Yes (Other)
  Sender: FDA-Public Use
  Company Number: 541723

PATIENT
  Age: 17 Year
  Sex: Male
  Weight: 70.3 kg

DRUGS (1)
  1. ACCUTANE [Suspect]
     Indication: ACNE CYSTIC
     Dosage: 100 MG DAILY ORAL
     Route: 048
     Dates: start: 20071105, end: 20080111

REACTIONS (1)
  - DEAFNESS [None]
